FAERS Safety Report 10144117 (Version 1)
Quarter: 2014Q2

REPORT INFORMATION
  Report Type: Spontaneous
  Country: GB (occurrence: GB)
  Receive Date: 20140430
  Receipt Date: 20140430
  Transmission Date: 20141212
  Serious: Yes (Life-Threatening, Hospitalization, Other)
  Sender: FDA-Public Use
  Company Number: GB-WATSON-2014-08437

PATIENT
  Age: 75 Year
  Sex: Female
  Weight: 70 kg

DRUGS (4)
  1. OMEPRAZOLE (UNKNOWN) [Suspect]
     Indication: GASTROOESOPHAGEAL REFLUX DISEASE
     Dosage: 20 MG, BID
     Route: 065
     Dates: start: 20131009, end: 20140221
  2. OMEPRAZOLE (UNKNOWN) [Suspect]
     Dosage: 20 MG, UNK
     Route: 065
     Dates: start: 20130320, end: 20130502
  3. DOMPERIDONE [Concomitant]
     Indication: NAUSEA
     Dosage: 10-20MG 3 TIMES A DAY
     Route: 065
     Dates: start: 20140212, end: 20140317
  4. CANDESARTAN [Concomitant]
     Indication: HYPERTENSION
     Dosage: 8 MG, UNK
     Route: 048
     Dates: start: 20130520, end: 20140317

REACTIONS (2)
  - Renal failure acute [Recovering/Resolving]
  - Tubulointerstitial nephritis [Recovering/Resolving]
